FAERS Safety Report 11641347 (Version 1)
Quarter: 2015Q4

REPORT INFORMATION
  Report Type: Spontaneous
  Country: JP (occurrence: JP)
  Receive Date: 20151019
  Receipt Date: 20151019
  Transmission Date: 20160304
  Serious: Yes (Death)
  Sender: FDA-Public Use
  Company Number: JP-BD RX INC-2015BDR00622

PATIENT
  Sex: Female
  Weight: 57.5 kg

DRUGS (4)
  1. PAROXETINE [Suspect]
     Active Substance: PAROXETINE\PAROXETINE HYDROCHLORIDE
  2. PHENOBARBITAL. [Suspect]
     Active Substance: PHENOBARBITAL
  3. DIAZEPAM. [Suspect]
     Active Substance: DIAZEPAM
  4. DIPHENHYDRAMINE HYDROCHLORIDE. [Suspect]
     Active Substance: DIPHENHYDRAMINE HYDROCHLORIDE

REACTIONS (9)
  - Visceral congestion [None]
  - Depressed level of consciousness [Fatal]
  - Brain oedema [None]
  - Pulmonary congestion [None]
  - Toxicity to various agents [Fatal]
  - Pulmonary oedema [None]
  - Contusion [None]
  - Drug interaction [Fatal]
  - Overdose [Fatal]
